FAERS Safety Report 7983052-1 (Version None)
Quarter: 2011Q4

REPORT INFORMATION
  Report Type: 
  Country: None (occurrence: None)
  Receive Date: 20111215
  Receipt Date: 20111206
  Transmission Date: 20120403
  Serious: Yes (Hospitalization, Other)
  Sender: FDA-Public Use
  Company Number: US-ELI_LILLY_AND_COMPANY-US201104003358

PATIENT
  Sex: Female

DRUGS (5)
  1. HUMULIN N [Suspect]
     Indication: TYPE 1 DIABETES MELLITUS
     Dosage: UNK
     Dates: start: 19830101, end: 19840101
  2. NOVOLOG [Concomitant]
     Indication: DIABETES MELLITUS
     Dosage: UNK, QD
     Dates: start: 20110201
  3. INSULIN [Concomitant]
     Indication: DIABETES MELLITUS
  4. HUMULIN R [Suspect]
     Indication: TYPE 1 DIABETES MELLITUS
     Dosage: UNK, BID
     Route: 065
     Dates: start: 19980101
  5. APIDRA [Concomitant]

REACTIONS (12)
  - BLOOD GLUCOSE INCREASED [None]
  - BLOOD CALCIUM DECREASED [None]
  - BLOOD CALCIUM INCREASED [None]
  - DYSPHONIA [None]
  - SINUSITIS [None]
  - PULMONARY CONGESTION [None]
  - TREMOR [None]
  - STRESS [None]
  - PNEUMONIA [None]
  - GLYCOSYLATED HAEMOGLOBIN INCREASED [None]
  - FEELING ABNORMAL [None]
  - PARATHYROID TUMOUR [None]
